FAERS Safety Report 10493462 (Version 1)
Quarter: 2014Q4

REPORT INFORMATION
  Report Type: Spontaneous
  Country: US (occurrence: US)
  Receive Date: 20141002
  Receipt Date: 20141002
  Transmission Date: 20150528
  Serious: No
  Sender: FDA-Public Use
  Company Number: US-GLAXOSMITHKLINE-A1084362A

PATIENT
  Age: 61 Year
  Sex: Male

DRUGS (6)
  1. LEVOTHYROXINE [Concomitant]
     Active Substance: LEVOTHYROXINE
  2. CRESTOR [Concomitant]
     Active Substance: ROSUVASTATIN CALCIUM
  3. FLECAINIDE [Concomitant]
     Active Substance: FLECAINIDE
  4. ADVAIR HFA [Suspect]
     Active Substance: FLUTICASONE PROPIONATE\SALMETEROL XINAFOATE
     Indication: LUNG INFECTION
     Dosage: 1PUFF TWICE PER DAY
     Route: 055
     Dates: start: 201406, end: 20140801
  5. PREDNISONE. [Suspect]
     Active Substance: PREDNISONE
     Indication: LUNG INFECTION
     Route: 048
     Dates: start: 20140702
  6. SPIRIVA [Concomitant]
     Active Substance: TIOTROPIUM BROMIDE MONOHYDRATE

REACTIONS (28)
  - Heart rate irregular [Unknown]
  - Pollakiuria [Unknown]
  - Migraine [Unknown]
  - Dehydration [Unknown]
  - Pruritus [Unknown]
  - Irritability [Unknown]
  - Vision blurred [Unknown]
  - Paraesthesia [Unknown]
  - Malaise [Unknown]
  - Fatigue [Recovering/Resolving]
  - Rash [Unknown]
  - Dizziness [Unknown]
  - Dyspnoea [Unknown]
  - Anxiety [Unknown]
  - Somnolence [Unknown]
  - Asthenia [Unknown]
  - Crying [Unknown]
  - Agitation [Unknown]
  - Chest discomfort [Unknown]
  - Dysphonia [Unknown]
  - Throat irritation [Unknown]
  - Nausea [Unknown]
  - Thirst [Unknown]
  - Hunger [Unknown]
  - Myalgia [Unknown]
  - Feeling jittery [Unknown]
  - Polydipsia [Unknown]
  - Tremor [Unknown]

NARRATIVE: CASE EVENT DATE: 201407
